FAERS Safety Report 15987014 (Version 4)
Quarter: 2019Q4

REPORT INFORMATION
  Report Type: Report from Study
  Country: US (occurrence: US)
  Receive Date: 20190220
  Receipt Date: 20191209
  Transmission Date: 20200122
  Serious: Yes (Death, Other)
  Sender: FDA-Public Use
  Company Number: US-JAZZ-2019-US-001961

PATIENT
  Age: 27 Year
  Sex: Female

DRUGS (14)
  1. ZIPRASIDONE HYDROCHLORIDE. [Concomitant]
     Active Substance: ZIPRASIDONE HYDROCHLORIDE
     Indication: PRODUCT USED FOR UNKNOWN INDICATION
  2. KEPPRA [Concomitant]
     Active Substance: LEVETIRACETAM
     Indication: PRODUCT USED FOR UNKNOWN INDICATION
  3. MODAFINIL. [Concomitant]
     Active Substance: MODAFINIL
     Indication: PRODUCT USED FOR UNKNOWN INDICATION
  4. WELLBUTRIN [Concomitant]
     Active Substance: BUPROPION HYDROCHLORIDE
     Indication: PRODUCT USED FOR UNKNOWN INDICATION
  5. MECLOZINE HYDROCHLORIDE [Concomitant]
     Active Substance: MECLOZINE DIHYDROCHLORIDE
     Indication: PRODUCT USED FOR UNKNOWN INDICATION
  6. COGENTIN [Concomitant]
     Active Substance: BENZTROPINE MESYLATE
     Indication: PRODUCT USED FOR UNKNOWN INDICATION
  7. NUVIGIL [Concomitant]
     Active Substance: ARMODAFINIL
     Indication: PRODUCT USED FOR UNKNOWN INDICATION
  8. BUSPAR [Concomitant]
     Active Substance: BUSPIRONE HYDROCHLORIDE
     Indication: ANXIETY
  9. FAZACLO [Suspect]
     Active Substance: CLOZAPINE
     Indication: PRODUCT USED FOR UNKNOWN INDICATION
     Dosage: 900 MG, UNK
     Route: 048
  10. FAZACLO [Suspect]
     Active Substance: CLOZAPINE
     Dosage: 450 MG, QD
     Route: 048
  11. ZOLOFT [Concomitant]
     Active Substance: SERTRALINE HYDROCHLORIDE
     Indication: PRODUCT USED FOR UNKNOWN INDICATION
  12. SEROQUEL [Concomitant]
     Active Substance: QUETIAPINE FUMARATE
     Indication: PRODUCT USED FOR UNKNOWN INDICATION
  13. ATROPINE. [Concomitant]
     Active Substance: ATROPINE
     Indication: PRODUCT USED FOR UNKNOWN INDICATION
  14. OMEPRAZOLE. [Concomitant]
     Active Substance: OMEPRAZOLE
     Indication: PRODUCT USED FOR UNKNOWN INDICATION

REACTIONS (17)
  - Narcolepsy [Unknown]
  - Gastrooesophageal reflux disease [Unknown]
  - Sedation [Unknown]
  - Musculoskeletal disorder [Unknown]
  - Apnoea [Unknown]
  - Dyspnoea [Unknown]
  - Rubber sensitivity [Unknown]
  - Loss of personal independence in daily activities [Not Recovered/Not Resolved]
  - Anxiety [Not Recovered/Not Resolved]
  - Diabetes mellitus [Unknown]
  - Snoring [Unknown]
  - Fatigue [Unknown]
  - Asthma [Unknown]
  - Nausea [Unknown]
  - Helicobacter test positive [Unknown]
  - Death [Fatal]
  - Gastrointestinal disorder [Unknown]

NARRATIVE: CASE EVENT DATE: 20100201
